FAERS Safety Report 15362122 (Version 1)
Quarter: 2018Q3

REPORT INFORMATION
  Report Type: Spontaneous
  Country: DE (occurrence: DE)
  Receive Date: 20180907
  Receipt Date: 20180907
  Transmission Date: 20181010
  Serious: Yes (Death, Hospitalization, Other)
  Sender: FDA-Public Use
  Company Number: PHHY2018DE089110

PATIENT
  Age: 51 Year
  Sex: Female
  Weight: 57 kg

DRUGS (13)
  1. PACLITAXEL. [Suspect]
     Active Substance: PACLITAXEL
     Dosage: 75 MG/M2, UNK(SUBSEQUENTLY SAME DOSE ON 06/JUL2010, 27/JUL/2010, 17/AUG/2010, 14/SEP/2010, 05/OCT/2)
     Route: 065
  2. BEVACIZUMAB. [Suspect]
     Active Substance: BEVACIZUMAB
     Dosage: 850 MG, UNK
     Route: 042
  3. IBUPROFEN. [Concomitant]
     Active Substance: IBUPROFEN
     Dosage: UNK
     Route: 065
  4. PACLITAXEL. [Suspect]
     Active Substance: PACLITAXEL
     Indication: PRODUCT USED FOR UNKNOWN INDICATION
     Dosage: 80 MG/M2, UNK(SUBSEQUENTLY SAME DOSE ON 21/FEB/2011, 01/MAR/2011, 15/MAR/2011)
     Route: 065
  5. BEVACIZUMAB. [Suspect]
     Active Substance: BEVACIZUMAB
     Dosage: 850 MG, UNK
     Route: 042
  6. CIPROFLOXACIN. [Concomitant]
     Active Substance: CIPROFLOXACIN
     Dosage: UNK
     Route: 065
  7. PACLITAXEL. [Suspect]
     Active Substance: PACLITAXEL
     Dosage: 75 MG/M2, UNK
     Route: 065
  8. BEVACIZUMAB. [Suspect]
     Active Substance: BEVACIZUMAB
     Indication: BREAST CANCER METASTATIC
     Dosage: 800 MG, UNK
     Route: 042
  9. CIPROFLOXACIN. [Concomitant]
     Active Substance: CIPROFLOXACIN
     Indication: INFLUENZA
  10. BEVACIZUMAB. [Suspect]
     Active Substance: BEVACIZUMAB
     Dosage: 900 MG, UNK
     Route: 042
  11. DOCETAXEL. [Concomitant]
     Active Substance: DOCETAXEL
     Indication: BREAST CANCER
     Dosage: 75 MG/M2, UNK
     Route: 065
  12. IBUPROFEN. [Concomitant]
     Active Substance: IBUPROFEN
     Indication: PAIN
  13. NOVALGIN [Concomitant]
     Indication: PAIN
     Dosage: FORM STRENGTH (500)
     Route: 065

REACTIONS (4)
  - Malignant neoplasm progression [Fatal]
  - Neutropenia [Recovered/Resolved]
  - Leukopenia [Recovered/Resolved]
  - Wound haemorrhage [Recovered/Resolved]

NARRATIVE: CASE EVENT DATE: 20100622
